FAERS Safety Report 10076548 (Version 1)
Quarter: 2014Q2

REPORT INFORMATION
  Report Type: Spontaneous
  Country: US (occurrence: US)
  Receive Date: 20140414
  Receipt Date: 20140414
  Transmission Date: 20141212
  Serious: No
  Sender: FDA-Public Use
  Company Number: US-PFIZER INC-2014100373

PATIENT
  Age: 50 Year
  Sex: Female

DRUGS (5)
  1. LYRICA [Suspect]
     Dosage: 150 MG, 1X/DAY (75 MG, TAKE 2 TABLETS BY MOUTH EACH EVENING/QHS)
     Route: 048
  2. LANTUS [Suspect]
     Dosage: UNK
  3. HUMALOG [Suspect]
     Dosage: UNK
  4. COZAAR [Suspect]
     Dosage: UNK
  5. SEROQUEL [Suspect]
     Dosage: UNK

REACTIONS (1)
  - Drug hypersensitivity [Unknown]
